APPROVED DRUG PRODUCT: METHOTREXATE SODIUM PRESERVATIVE FREE
Active Ingredient: METHOTREXATE SODIUM
Strength: EQ 1GM BASE/40ML (EQ 25MG BASE/ML)
Dosage Form/Route: INJECTABLE;INJECTION
Application: N011719 | Product #012 | TE Code: AP
Applicant: HOSPIRA INC
Approved: Apr 13, 2005 | RLD: Yes | RS: Yes | Type: RX